FAERS Safety Report 25523891 (Version 1)
Quarter: 2025Q3

REPORT INFORMATION
  Report Type: Spontaneous
  Country: EU (occurrence: EU)
  Receive Date: 20250707
  Receipt Date: 20250707
  Transmission Date: 20251021
  Serious: Yes (Hospitalization, Other)
  Sender: BAXTER
  Company Number: None

PATIENT
  Age: 39 Year
  Sex: Female

DRUGS (3)
  1. ACETAMINOPHEN [Suspect]
     Active Substance: ACETAMINOPHEN
     Route: 065
     Dates: start: 20180309, end: 20180309
  2. LITHIUM [Suspect]
     Active Substance: LITHIUM
     Route: 065
     Dates: start: 20180309, end: 20180309
  3. OXAZEPAM [Suspect]
     Active Substance: OXAZEPAM
     Route: 065
     Dates: start: 20180309, end: 20180309

REACTIONS (3)
  - Suicide attempt [Unknown]
  - Toxicity to various agents [Unknown]
  - Intentional overdose [Unknown]

NARRATIVE: CASE EVENT DATE: 20180309
